FAERS Safety Report 20212497 (Version 1)
Quarter: 2021Q4

REPORT INFORMATION
  Report Type: Spontaneous
  Country: US (occurrence: US)
  Receive Date: 20211221
  Receipt Date: 20211221
  Transmission Date: 20220303
  Serious: Yes (Hospitalization)
  Sender: FDA-Public Use
  Company Number: US-PFIZER INC-202101741556

PATIENT
  Age: 68 Year
  Sex: Female
  Weight: 104 kg

DRUGS (1)
  1. AROMASIN [Suspect]
     Active Substance: EXEMESTANE
     Indication: Breast cancer female
     Dosage: 25 MG, DAILY
     Route: 048
     Dates: start: 202009

REACTIONS (2)
  - Fall [Unknown]
  - Chest pain [Unknown]
